FAERS Safety Report 20632996 (Version 1)
Quarter: 2022Q1

REPORT INFORMATION
  Report Type: Spontaneous
  Country: IN (occurrence: IN)
  Receive Date: 20220324
  Receipt Date: 20220324
  Transmission Date: 20220423
  Serious: Yes (Hospitalization, Other)
  Sender: FDA-Public Use
  Company Number: IN-PFIZER INC-202200355863

PATIENT
  Age: 60 Year
  Sex: Male
  Weight: 70 kg

DRUGS (1)
  1. LORLATINIB [Suspect]
     Active Substance: LORLATINIB
     Indication: Lung neoplasm malignant
     Dosage: 100 MG, 1X/DAY (AROUND 40 DAYS)
     Route: 048

REACTIONS (4)
  - Pericardial effusion [Recovering/Resolving]
  - Hyperventilation [Recovering/Resolving]
  - Weight increased [Recovering/Resolving]
  - Insomnia [Recovering/Resolving]
